FAERS Safety Report 6680818-5 (Version None)
Quarter: 2010Q2

REPORT INFORMATION
  Report Type: 
  Country: None (occurrence: None)
  Receive Date: 20100414
  Receipt Date: 20100412
  Transmission Date: 20101027
  Serious: Yes (Other)
  Sender: FDA-Public Use
  Company Number: US-ASTRAZENECA-2007UW25574

PATIENT
  Age: 40 Year
  Sex: Male
  Weight: 92.7 kg

DRUGS (24)
  1. SEROQUEL [Suspect]
     Indication: BIPOLAR DISORDER
     Route: 048
     Dates: start: 19970101
  2. SEROQUEL [Suspect]
     Indication: SLEEP DISORDER
     Route: 048
     Dates: start: 19970101
  3. SEROQUEL [Suspect]
     Dosage: 50-800 MG
     Route: 048
     Dates: start: 19990720
  4. SEROQUEL [Suspect]
     Dosage: 50-800 MG
     Route: 048
     Dates: start: 19990720
  5. SEROQUEL [Suspect]
     Dosage: 200-600 MG
     Route: 048
     Dates: start: 20030207
  6. SEROQUEL [Suspect]
     Dosage: 200-600 MG
     Route: 048
     Dates: start: 20030207
  7. RISPERDAL [Concomitant]
     Dosage: 2-4 MG
     Dates: start: 19950601, end: 19951201
  8. ZYPREXA [Concomitant]
     Dates: start: 19960101, end: 20041223
  9. HALDOL [Concomitant]
  10. THORAZINE [Concomitant]
     Dates: start: 19950101
  11. ULTRAM [Concomitant]
     Dates: start: 19970710
  12. AMITRIPTYLINE HCL [Concomitant]
     Dates: start: 19980407
  13. NAPROXEN SOD [Concomitant]
     Dates: start: 19980407
  14. WELLBUTRIN SR/ WELLBUTRIN XL [Concomitant]
     Indication: FIBROMYALGIA
     Dosage: 100-300 MG
     Dates: start: 19980430
  15. WELLBUTRIN SR/ WELLBUTRIN XL [Concomitant]
     Dosage: 150-300 MG
     Route: 048
     Dates: start: 20030207
  16. NEURONTIN [Concomitant]
     Dosage: 300-600 MG
     Dates: start: 20000804
  17. PREVACID DR [Concomitant]
     Dates: start: 20010116
  18. AMARYL [Concomitant]
     Dosage: 4-8 MG
     Dates: start: 20011229
  19. NEXIUM [Concomitant]
     Dates: start: 20011229
  20. ACTOS [Concomitant]
     Dates: start: 20011229
  21. XANAX [Concomitant]
     Indication: SCHIZOPHRENIA
     Dosage: 1-4 MG
     Dates: start: 20030513
  22. XANAX [Concomitant]
     Dosage: 1-4 MG
     Route: 048
     Dates: start: 20030207
  23. ZOCOR [Concomitant]
     Dosage: 20-40 MG
     Dates: start: 20041206
  24. ATENOLOL [Concomitant]
     Dosage: 25-50 MG
     Route: 048
     Dates: start: 20030207

REACTIONS (9)
  - DIABETES INSIPIDUS [None]
  - DIABETES MELLITUS [None]
  - DIABETES MELLITUS INADEQUATE CONTROL [None]
  - DIABETIC COMA [None]
  - HYPOGLYCAEMIA [None]
  - MACULOPATHY [None]
  - NEPHROGENIC DIABETES INSIPIDUS [None]
  - NEUROPATHY PERIPHERAL [None]
  - TYPE 2 DIABETES MELLITUS [None]
